FAERS Safety Report 8778862 (Version 2)
Quarter: 2012Q4

REPORT INFORMATION
  Report Type: 
  Country: CA (occurrence: CA)
  Receive Date: 20120912
  Receipt Date: 20121022
  Transmission Date: 20130627
  Serious: Yes (Other)
  Sender: FDA-Public Use
  Company Number: CA-JNJFOC-20120207796

PATIENT
  Sex: Female
  Weight: 89.8 kg

DRUGS (8)
  1. REMICADE [Suspect]
     Indication: CROHN^S DISEASE
     Route: 042
     Dates: start: 20100310
  2. REMICADE [Suspect]
     Indication: CROHN^S DISEASE
     Route: 042
     Dates: start: 20120816
  3. PANTOLOC [Concomitant]
     Route: 065
  4. DILTIAZEM [Concomitant]
     Route: 065
  5. IRON [Concomitant]
     Route: 065
  6. VITAMIN B12 [Concomitant]
     Route: 065
  7. FLUTICASONE [Concomitant]
     Route: 045
  8. SOLU CORTEF [Concomitant]
     Route: 042

REACTIONS (2)
  - Sinusitis [Recovered/Resolved]
  - Nasal polyps [Recovered/Resolved]
